FAERS Safety Report 5191644-0 (Version None)
Quarter: 2006Q4

REPORT INFORMATION
  Report Type: 
  Country: None (occurrence: None)
  Receive Date: 20061219
  Receipt Date: 20061207
  Transmission Date: 20070319
  Serious: Yes (Other)
  Sender: FDA-Public Use
  Company Number: 2006150948

PATIENT

DRUGS (2)
  1. NORVASC [Suspect]
     Dosage: 5 MG (5 MG, 1 IN 1 D),ORAL
     Route: 048
  2. AMARYL [Concomitant]

REACTIONS (2)
  - CONSTIPATION [None]
  - LIP AND/OR ORAL CAVITY CANCER [None]
